FAERS Safety Report 19886373 (Version 7)
Quarter: 2022Q2

REPORT INFORMATION
  Report Type: Report from Study
  Country: US (occurrence: US)
  Receive Date: 20210928
  Receipt Date: 20220415
  Transmission Date: 20220721
  Serious: Yes (Hospitalization)
  Sender: FDA-Public Use
  Company Number: NVSC2021US218670

PATIENT
  Age: 76 Year
  Sex: Male

DRUGS (2)
  1. ENTRESTO [Suspect]
     Active Substance: SACUBITRIL\VALSARTAN
     Indication: Product used for unknown indication
     Dosage: UNK
     Route: 065
  2. AMIODARONE HYDROCHLORIDE [Suspect]
     Active Substance: AMIODARONE HYDROCHLORIDE
     Indication: Cardiac failure
     Dosage: 1 DF, QD, 1 PILL
     Route: 048
     Dates: start: 202106, end: 202109

REACTIONS (17)
  - Cardiac disorder [Unknown]
  - Tremor [Unknown]
  - Swelling [Recovering/Resolving]
  - Gait disturbance [Recovering/Resolving]
  - Vision blurred [Recovering/Resolving]
  - Myalgia [Recovered/Resolved]
  - Device malfunction [Recovered/Resolved]
  - Peripheral swelling [Unknown]
  - Malaise [Recovered/Resolved]
  - Chest discomfort [Unknown]
  - Fall [Recovered/Resolved]
  - Fluid retention [Unknown]
  - Muscular weakness [Recovering/Resolving]
  - Dysstasia [Unknown]
  - Asthenia [Recovering/Resolving]
  - Hypotension [Recovering/Resolving]
  - Product use in unapproved indication [Unknown]

NARRATIVE: CASE EVENT DATE: 20210801
